FAERS Safety Report 12145407 (Version 1)
Quarter: 2016Q1

REPORT INFORMATION
  Report Type: Spontaneous
  Country: ES (occurrence: ES)
  Receive Date: 20160304
  Receipt Date: 20160304
  Transmission Date: 20160526
  Serious: Yes (Death, Congenital Anomaly, Other)
  Sender: FDA-Public Use
  Company Number: PHHY2016ES027097

PATIENT

DRUGS (1)
  1. KETOPROFEN. [Suspect]
     Active Substance: KETOPROFEN
     Indication: FOETAL EXPOSURE DURING PREGNANCY
     Route: 064

REACTIONS (4)
  - Ductus arteriosus premature closure [Fatal]
  - Foetal exposure during pregnancy [Unknown]
  - Pulmonary hypertension [Fatal]
  - Premature baby [Unknown]
